FAERS Safety Report 9334262 (Version 1)
Quarter: 2013Q2

REPORT INFORMATION
  Report Type: Spontaneous
  Country: US (occurrence: US)
  Receive Date: 20130606
  Receipt Date: 20130606
  Transmission Date: 20140414
  Serious: No
  Sender: FDA-Public Use
  Company Number: US-AMGEN-USASP2013030194

PATIENT
  Age: 66 Year
  Sex: Female

DRUGS (5)
  1. PROLIA [Suspect]
     Indication: OSTEOPOROSIS POSTMENOPAUSAL
     Dosage: 60 MG, UNK
  2. COUMADIN                           /00014802/ [Concomitant]
  3. QUINAPRIL [Concomitant]
  4. SIMVASTATIN [Concomitant]
  5. TEMAZEPAM [Concomitant]

REACTIONS (4)
  - Nausea [Recovered/Resolved]
  - Pain [Recovered/Resolved]
  - Rosacea [Unknown]
  - Pain in extremity [Recovered/Resolved]
